FAERS Safety Report 14403785 (Version 2)
Quarter: 2019Q4

REPORT INFORMATION
  Report Type: Spontaneous
  Country: GB (occurrence: GB)
  Receive Date: 20180117
  Receipt Date: 20191112
  Transmission Date: 20200122
  Serious: Yes (Other)
  Sender: FDA-Public Use
  Company Number: GB-PFIZER INC-2018015276

PATIENT
  Age: 59 Year
  Sex: Male
  Weight: 102 kg

DRUGS (6)
  1. LEFLUNOMIDE. [Concomitant]
     Active Substance: LEFLUNOMIDE
     Dosage: 1 DF, 1X/DAY
     Dates: start: 20170705
  2. OMEPRAZOLE. [Concomitant]
     Active Substance: OMEPRAZOLE
     Dosage: 1 DF, 1X/DAY
     Dates: start: 20170705
  3. NAPROXEN. [Concomitant]
     Active Substance: NAPROXEN
     Dosage: 3 DF, 1X/DAY (AFTER MEALS)
     Dates: start: 20171116, end: 20171214
  4. FOLIC ACID. [Concomitant]
     Active Substance: FOLIC ACID
     Dosage: 6 DF, WEEKLY (AS PER RHEUMATOLOGY)
     Dates: start: 20171207
  5. METHOTREXATE SODIUM. [Suspect]
     Active Substance: METHOTREXATE SODIUM
     Dosage: UNK
     Route: 048
     Dates: start: 20171215
  6. AMITRIPTYLINE HYDROCHLORIDE. [Concomitant]
     Active Substance: AMITRIPTYLINE HYDROCHLORIDE
     Dosage: 1 DF, 1X/DAY (AT NIGHT)
     Dates: start: 20170824

REACTIONS (1)
  - Migraine [Recovered/Resolved]

NARRATIVE: CASE EVENT DATE: 20171215
